FAERS Safety Report 6889874-2 (Version None)
Quarter: 2010Q3

REPORT INFORMATION
  Report Type: 
  Country: None (occurrence: None)
  Receive Date: 20100730
  Receipt Date: 20080523
  Transmission Date: 20110219
  Serious: No
  Sender: FDA-Public Use
  Company Number: US-PFIZER INC-2008045395

PATIENT
  Sex: Male
  Weight: 80.9 kg

DRUGS (7)
  1. LIPITOR [Suspect]
     Indication: CARDIAC DISORDER
     Dates: start: 20080101, end: 20080501
  2. SIMVASTATIN [Suspect]
     Indication: CARDIAC DISORDER
     Dates: start: 20080514, end: 20080517
  3. VITAMIN B6 [Concomitant]
  4. LISINOPRIL [Concomitant]
  5. SPIRONOLACTONE [Concomitant]
  6. ACETYLSALICYLIC ACID SRT [Concomitant]
  7. COREG [Concomitant]

REACTIONS (3)
  - CONSTIPATION [None]
  - VOMITING [None]
  - WRONG TECHNIQUE IN DRUG USAGE PROCESS [None]
